FAERS Safety Report 17455588 (Version 35)
Quarter: 2021Q3

REPORT INFORMATION
  Report Type: Spontaneous
  Country: CA (occurrence: CA)
  Receive Date: 20200225
  Receipt Date: 20210806
  Transmission Date: 20211014
  Serious: Yes (Hospitalization, Other)
  Sender: FDA-Public Use
  Company Number: CA-CELLTRION INC.-2019CA024153

PATIENT

DRUGS (48)
  1. INFLECTRA [Suspect]
     Active Substance: INFLIXIMAB-DYYB
     Dosage: 400 MG, EVERY 8 WEEKS
     Route: 042
     Dates: start: 20191217
  2. INFLECTRA [Suspect]
     Active Substance: INFLIXIMAB-DYYB
     Dosage: 10 MG/KG AT WEEK 0, 2, 6 AND THEN EVERY 6 WEEKS (RE?INDUCTION)
     Route: 042
     Dates: start: 20200710
  3. INFLECTRA [Suspect]
     Active Substance: INFLIXIMAB-DYYB
     Dosage: 10 MG/KG EVERY 4 WEEKS (DOSE ROUNDED TO NEAREST HUNDRED)
     Route: 042
     Dates: start: 20201030
  4. INFLECTRA [Suspect]
     Active Substance: INFLIXIMAB-DYYB
     Dosage: 5 MG/KG, EVERY 4 WEEKS (NOT STARTED YET)
     Route: 042
     Dates: start: 20210331
  5. INFLECTRA [Suspect]
     Active Substance: INFLIXIMAB-DYYB
     Dosage: 5 MG/KG, EVERY 4 WEEKS
     Route: 042
     Dates: start: 20210428
  6. INFLECTRA [Suspect]
     Active Substance: INFLIXIMAB-DYYB
     Dosage: 5 MG/KG, EVERY 4 WEEKS
     Route: 042
     Dates: start: 20210611
  7. LORAZEPAM. [Concomitant]
     Active Substance: LORAZEPAM
     Dosage: 1 MG, AS NEEDED (AT NIGHT/ AT BEDTIME)
     Route: 048
  8. RATIO?PROCTOSONE [Concomitant]
     Indication: HAEMORRHOIDS
     Dosage: UNK, TWICE DAILY
     Route: 061
  9. RATIO?NYSTATIN [Concomitant]
     Active Substance: NYSTATIN
     Dosage: 100000 IU, FOUR TIMES DAILY
  10. INFLECTRA [Suspect]
     Active Substance: INFLIXIMAB-DYYB
     Dosage: 10 MG/KG, AT 0, 2, 6 WEEKS, THEN EVERY 8 WEEKS
     Route: 042
     Dates: start: 20190725
  11. INFLECTRA [Suspect]
     Active Substance: INFLIXIMAB-DYYB
     Dosage: 400 MG, EVERY 8 WEEKS
     Route: 042
     Dates: start: 20200211
  12. INFLECTRA [Suspect]
     Active Substance: INFLIXIMAB-DYYB
     Dosage: 10 MG/KG EVERY 4 WEEKS (DOSE ROUNDED TO NEAREST HUNDRED)
     Route: 042
     Dates: start: 20200925
  13. INFLECTRA [Suspect]
     Active Substance: INFLIXIMAB-DYYB
     Dosage: 7.5 MG/KG EVERY 4 WEEKS
     Route: 042
     Dates: start: 20210205
  14. PREDNISONE TEVA [Concomitant]
     Active Substance: PREDNISONE
     Dosage: 5 MG (TAPERING)
     Route: 048
  15. SULCRATE [Concomitant]
     Active Substance: SUCRALFATE
     Dosage: 5 ML, 4X/DAY
     Route: 048
  16. ACETAMINOPHEN. [Concomitant]
     Active Substance: ACETAMINOPHEN
     Indication: PAIN
     Dosage: 1 TO 2 DF, AS NEEDED (FOUR TIMES DAILY)
  17. ESOMEPRAZOLE MYLAN [ESOMEPRAZOLE] [Concomitant]
     Active Substance: ESOMEPRAZOLE SODIUM
     Dosage: 40 MG, 1X/DAY
     Route: 048
  18. M?ESLON [Concomitant]
     Active Substance: MORPHINE SULFATE
     Dosage: 1 MG, 2X/DAY 1/2 TAB
     Route: 065
  19. RANITIDINE TEVA [Concomitant]
     Dosage: 150 MG, 2X/DAY  (1 TAB)
     Route: 048
  20. INFLECTRA [Suspect]
     Active Substance: INFLIXIMAB-DYYB
     Dosage: 10 MG/KG EVERY 4 WEEKS (DOSE ROUNDED TO NEAREST HUNDRED)
     Route: 042
     Dates: start: 20201207
  21. ONDANSETRON. [Concomitant]
     Active Substance: ONDANSETRON
     Dosage: 6 MG, AS NEEDED (THRICE DAILY)
     Route: 048
  22. STATEX [MORPHINE SULFATE] [Concomitant]
     Active Substance: MORPHINE SULFATE
     Indication: PAIN
     Dosage: 5 MG, AS NEEDED (EVERY HOUR)
     Route: 048
  23. INFLECTRA [Suspect]
     Active Substance: INFLIXIMAB-DYYB
     Dosage: 10 MG/KG, AT 0, 2, 6 WEEKS, THEN EVERY 8 WEEKS
     Route: 042
     Dates: start: 20190819
  24. INFLECTRA [Suspect]
     Active Substance: INFLIXIMAB-DYYB
     Dosage: 400 MG, EVERY 8 WEEKS
     Route: 042
     Dates: start: 20191217
  25. INFLECTRA [Suspect]
     Active Substance: INFLIXIMAB-DYYB
     Dosage: 400 MG, EVERY 8 WEEKS
     Route: 042
     Dates: start: 20200409
  26. AZOLE [Concomitant]
     Active Substance: ALBENDAZOLE
     Dosage: 40 MG, UNK
  27. CALCIUM [Concomitant]
     Active Substance: CALCIUM
     Dosage: 500 MG, UNK
  28. KETAMINE [Concomitant]
     Active Substance: KETAMINE
     Dosage: 2 %, AS NEEDED (FOUR TIMES DAILY)
     Route: 061
  29. M?ESLON [Concomitant]
     Active Substance: MORPHINE SULFATE
     Dosage: 150 MG, 2X/DAY
     Route: 065
  30. METADOL [METHADONE HYDROCHLORIDE] [Concomitant]
     Active Substance: METHADONE HYDROCHLORIDE
     Dosage: 0.5 MG, 2X/DAY (1MG, 1/2 TAB)
     Route: 048
  31. ONDANSETRON. [Concomitant]
     Active Substance: ONDANSETRON
     Dosage: 8 MG, 3/4 TAB, AS NEEDED (TID)
     Route: 065
  32. TARO?ZOLEDRONIC ACID [Concomitant]
     Active Substance: ZOLEDRONIC ACID
     Dosage: 5 MG, UNK
     Route: 042
  33. INFLECTRA [Suspect]
     Active Substance: INFLIXIMAB-DYYB
     Dosage: 400 MG, EVERY 8 WEEKS
     Route: 042
     Dates: start: 20200528
  34. INFLECTRA [Suspect]
     Active Substance: INFLIXIMAB-DYYB
     Dosage: 10 MG/KG AT WEEK 0, 2, 6 AND THEN EVERY 6 WEEKS (RE?INDUCTION)
     Route: 042
     Dates: start: 20200814
  35. ASACOL [Concomitant]
     Active Substance: MESALAMINE
     Dosage: 400 MG, THRICE DAILY
  36. D?GEL [Concomitant]
     Dosage: 1000 IU, 1X/DAY
     Route: 065
  37. RIVA?RANITIDINE [Concomitant]
     Dosage: 150 MG, (1TAB) TWICE DAILY )
     Route: 048
  38. INFLECTRA [Suspect]
     Active Substance: INFLIXIMAB-DYYB
     Dosage: 10 MG/KG EVERY 4 WEEKS (DOSE ROUNDED TO NEAREST HUNDRED)
     Route: 042
     Dates: start: 20201208
  39. INFLECTRA [Suspect]
     Active Substance: INFLIXIMAB-DYYB
     Dosage: 7.5 MG/KG EVERY 4 WEEKS
     Route: 042
     Dates: start: 2020
  40. INFLECTRA [Suspect]
     Active Substance: INFLIXIMAB-DYYB
     Dosage: 7.5 MG/KG EVERY 4 WEEKS
     Route: 042
     Dates: start: 20210108
  41. INFLECTRA [Suspect]
     Active Substance: INFLIXIMAB-DYYB
     Dosage: 7.5 MG/KG EVERY 4 WEEKS
     Route: 042
     Dates: start: 20210331
  42. PREDNISONE. [Concomitant]
     Active Substance: PREDNISONE
     Dosage: 5 MG, (TAPERING)
     Route: 048
  43. INFLECTRA [Suspect]
     Active Substance: INFLIXIMAB-DYYB
     Indication: CROHN^S DISEASE
     Dosage: 10 MG/KG, AT 0, 2, 6 WEEKS, THEN EVERY 8 WEEKS
     Route: 042
     Dates: start: 20190612
  44. INFLECTRA [Suspect]
     Active Substance: INFLIXIMAB-DYYB
     Dosage: 400 MG, EVERY 8 WEEKS
     Route: 042
     Dates: start: 20191018
  45. INFLECTRA [Suspect]
     Active Substance: INFLIXIMAB-DYYB
     Dosage: 10 MG/KG EVERY 4 WEEKS (DOSE ROUNDED TO NEAREST HUNDRED)
     Route: 042
  46. INFLECTRA [Suspect]
     Active Substance: INFLIXIMAB-DYYB
     Dosage: 7.5 MG/KG EVERY 4 WEEKS
     Route: 042
     Dates: start: 20210301
  47. JAMP DICYCLOMINE HCL [Concomitant]
     Dosage: 70 MG, DAILY (20 MG (10 MG 2 TABS), THRICE DAILY OR EVERY 8 HOURS AND 10 MG AT BEDTIME)
     Route: 048
  48. JAMP CALCIUM [Concomitant]
     Dosage: 500 MG, TWICE DAILY
     Route: 065

REACTIONS (39)
  - SARS-CoV-2 test positive [Recovered/Resolved]
  - Fistula [Unknown]
  - Off label use [Unknown]
  - Pyrexia [Recovered/Resolved]
  - Conjunctivitis [Unknown]
  - Therapeutic response shortened [Unknown]
  - Incorrect dose administered [Unknown]
  - Rhinorrhoea [Unknown]
  - Condition aggravated [Not Recovered/Not Resolved]
  - Abscess [Unknown]
  - Off label use [Unknown]
  - Inappropriate schedule of product administration [Unknown]
  - Oropharyngeal pain [Unknown]
  - Pharyngeal paraesthesia [Recovered/Resolved]
  - Neck pain [Recovered/Resolved]
  - Swelling [Unknown]
  - Sinusitis bacterial [Unknown]
  - Weight increased [Not Recovered/Not Resolved]
  - Skin disorder [Unknown]
  - Drug level increased [Unknown]
  - Pharyngitis [Unknown]
  - Vulval ulceration [Unknown]
  - Pain in extremity [Recovered/Resolved]
  - Injection site pain [Unknown]
  - Ear pain [Unknown]
  - Rhinitis [Unknown]
  - Nasopharyngitis [Unknown]
  - Myalgia [Unknown]
  - Ear infection [Not Recovered/Not Resolved]
  - Discharge [Not Recovered/Not Resolved]
  - Infection [Not Recovered/Not Resolved]
  - Vein rupture [Not Recovered/Not Resolved]
  - Intentional product use issue [Unknown]
  - Dysphagia [Unknown]
  - Dehydration [Unknown]
  - Peripheral swelling [Unknown]
  - Sinus pain [Unknown]
  - Product dispensing error [Unknown]
  - Poor venous access [Not Recovered/Not Resolved]

NARRATIVE: CASE EVENT DATE: 20190819
